FAERS Safety Report 12535402 (Version 1)
Quarter: 2016Q3

REPORT INFORMATION
  Report Type: Spontaneous
  Country: US (occurrence: None)
  Receive Date: 20160706
  Receipt Date: 20160706
  Transmission Date: 20161109
  Serious: Yes (Other)
  Sender: FDA-Public Use
  Company Number: None

PATIENT
  Age: 77 Year
  Sex: Female

DRUGS (1)
  1. PROLIA [Suspect]
     Active Substance: DENOSUMAB
     Indication: OSTEOPOROSIS
     Dosage: PROLIA 60 MG/ML SYRINGE EVERY 6 MONTHS SUBCUTANEOUSLY
     Route: 058
     Dates: start: 20151212

REACTIONS (1)
  - Lung neoplasm malignant [None]
